FAERS Safety Report 20419830 (Version 1)
Quarter: 2022Q1

REPORT INFORMATION
  Report Type: Spontaneous
  Country: GB (occurrence: GB)
  Receive Date: 20220203
  Receipt Date: 20220203
  Transmission Date: 20220423
  Serious: Yes (Hospitalization, Disabling)
  Sender: FDA-Public Use
  Company Number: GB-NEON-MI-2022-0825

PATIENT
  Sex: Male

DRUGS (1)
  1. LOSEC [Suspect]
     Active Substance: OMEPRAZOLE
     Indication: Gastrooesophageal reflux disease
     Route: 050
     Dates: start: 20020107, end: 20220106

REACTIONS (1)
  - Bacterial diarrhoea [Recovered/Resolved]
